FAERS Safety Report 5711713-3 (Version None)
Quarter: 2008Q2

REPORT INFORMATION
  Report Type: 
  Country: None (occurrence: None)
  Receive Date: 20080421
  Receipt Date: 20080415
  Transmission Date: 20081010
  Serious: Yes (Other)
  Sender: FDA-Public Use
  Company Number: PHNU2008DE01569

PATIENT
  Age: 61 Year
  Sex: Male

DRUGS (1)
  1. RASILEZ [Suspect]
     Dosage: 150 MG/D
     Dates: start: 20080208, end: 20080229

REACTIONS (3)
  - DERMATITIS BULLOUS [None]
  - ERYTHEMA NODOSUM [None]
  - SKIN ULCER [None]
